FAERS Safety Report 4558642-9 (Version None)
Quarter: 2005Q1

REPORT INFORMATION
  Report Type: 
  Country: None (occurrence: None)
  Receive Date: 20050121
  Receipt Date: 20050111
  Transmission Date: 20050727
  Serious: Yes (Hospitalization)
  Sender: FDA-Public Use
  Company Number: US-JNJFOC-20040500945

PATIENT
  Sex: Male
  Weight: 66.5 kg

DRUGS (14)
  1. RISPERIDONE [Suspect]
     Indication: SCHIZOPHRENIA
     Route: 065
     Dates: start: 20030611, end: 20040413
  2. OLANZAPINE [Suspect]
     Indication: SCHIZOPHRENIA
     Route: 065
     Dates: start: 20030611, end: 20040413
  3. QUETIAPINE [Suspect]
     Indication: SCHIZOPHRENIA
     Route: 065
     Dates: start: 20030611, end: 20040413
  4. TRAZODONE HCL [Concomitant]
  5. M.V.I. [Concomitant]
  6. M.V.I. [Concomitant]
  7. M.V.I. [Concomitant]
  8. M.V.I. [Concomitant]
  9. M.V.I. [Concomitant]
  10. M.V.I. [Concomitant]
  11. M.V.I. [Concomitant]
  12. M.V.I. [Concomitant]
  13. FESO4 [Concomitant]
  14. CARBAMAZEPINE [Concomitant]
     Indication: SCHIZOPHRENIA
     Route: 049

REACTIONS (3)
  - DIABETIC KETOACIDOSIS [None]
  - GASTROINTESTINAL NECROSIS [None]
  - PNEUMONIA [None]
